FAERS Safety Report 7072159-1 (Version None)
Quarter: 2010Q4

REPORT INFORMATION
  Report Type: 
  Country: None (occurrence: None)
  Receive Date: 20101029
  Receipt Date: 20091210
  Transmission Date: 20110411
  Serious: Yes (Hospitalization)
  Sender: FDA-Public Use
  Company Number: A0834581A

PATIENT
  Age: 79 Year
  Sex: Male

DRUGS (9)
  1. ADVAIR DISKUS 100/50 [Suspect]
     Indication: CHRONIC OBSTRUCTIVE PULMONARY DISEASE
     Route: 055
  2. XOPENEX [Concomitant]
  3. ACCOLATE [Concomitant]
  4. PLAVIX [Concomitant]
  5. PREDNISONE [Concomitant]
  6. SPIRIVA [Concomitant]
  7. DIOXIN [Concomitant]
  8. NEXIUM [Concomitant]
  9. ZOCOR [Concomitant]

REACTIONS (1)
  - PNEUMONIA [None]
